FAERS Safety Report 19169490 (Version 1)
Quarter: 2021Q2

REPORT INFORMATION
  Report Type: Spontaneous
  Country: US (occurrence: US)
  Receive Date: 20210422
  Receipt Date: 20210422
  Transmission Date: 20210717
  Serious: No
  Sender: FDA-Public Use
  Company Number: US-DERMIRA, INC.-US-2021DER000002

PATIENT
  Age: 78 Year
  Sex: Male
  Weight: 70.3 kg

DRUGS (7)
  1. QBREXZA [Suspect]
     Active Substance: GLYCOPYRRONIUM TOSYLATE
     Indication: HYPERHIDROSIS
     Dosage: UNK, QOD
     Route: 061
     Dates: start: 20201115, end: 20201119
  2. TIMOLOL. [Concomitant]
     Active Substance: TIMOLOL
     Indication: GLAUCOMA
     Dosage: 1 DF, BID
     Route: 047
     Dates: start: 2017
  3. QBREXZA [Suspect]
     Active Substance: GLYCOPYRRONIUM TOSYLATE
     Dosage: UNK, QD
     Route: 061
     Dates: start: 202010, end: 20201114
  4. QBREXZA [Suspect]
     Active Substance: GLYCOPYRRONIUM TOSYLATE
     Dosage: UNK, QD
     Route: 061
     Dates: start: 20201119
  5. LATANOPROST. [Concomitant]
     Active Substance: LATANOPROST
     Indication: GLAUCOMA
     Dosage: 1 DF, BID
     Route: 047
     Dates: start: 2015
  6. PRESERVISION [Concomitant]
     Active Substance: MINERALS\VITAMINS
     Indication: MACULOPATHY
     Dosage: 1 DF, QD
     Dates: start: 2015
  7. FLOMAX [Concomitant]
     Active Substance: TAMSULOSIN HYDROCHLORIDE
     Indication: URINARY RETENTION
     Dosage: 1?2 TABS A DAY DEPENDING ON URINARY STREAM
     Dates: start: 2008

REACTIONS (4)
  - Intentional product misuse [Unknown]
  - Contraindicated product administered [Unknown]
  - Hyperhidrosis [Unknown]
  - Labelled drug-disease interaction medication error [None]

NARRATIVE: CASE EVENT DATE: 202010
